FAERS Safety Report 4717645-1 (Version None)
Quarter: 2005Q3

REPORT INFORMATION
  Report Type: 
  Country: None (occurrence: None)
  Receive Date: 20050713
  Receipt Date: 20050603
  Transmission Date: 20060218
  Serious: Yes (Other)
  Sender: FDA-Public Use
  Company Number: 406978

PATIENT
  Sex: Male

DRUGS (5)
  1. FUZEON [Suspect]
     Indication: HIV INFECTION
     Dosage: 90 MG/ML 2 PER DAY
     Dates: start: 20040501
  2. KALETRA [Concomitant]
  3. NORVIR [Concomitant]
  4. VIRED (TENOFOVIR) [Concomitant]
  5. VIDEX [Concomitant]

REACTIONS (1)
  - INJECTION SITE REACTION [None]
